FAERS Safety Report 4492895-0 (Version None)
Quarter: 2004Q4

REPORT INFORMATION
  Report Type: 
  Country: None (occurrence: None)
  Receive Date: 20041029
  Receipt Date: 20041019
  Transmission Date: 20050328
  Serious: Yes (Other)
  Sender: FDA-Public Use
  Company Number: 2004240504DE

PATIENT
  Age: 36 Year
  Sex: Female
  Weight: 73 kg

DRUGS (2)
  1. FARMOURABICINE (EPIRUBICIN HYDROCHLORIDE) SOLUTION, STERILE [Suspect]
     Indication: BREAST CANCER
     Dosage: 155 MG, CYCLIC, IV
     Route: 042
     Dates: start: 20041013
  2. COMPARATOR-CYCLOSPHAMIDE (CYCLOPHOSPHAMIDE) INJECTION [Suspect]
     Indication: BREAST CANCER
     Dosage: 1032 MG, CYCLIC, IV
     Route: 042
     Dates: start: 20041013

REACTIONS (2)
  - DEPRESSION [None]
  - VOMITING [None]
